FAERS Safety Report 6268348-6 (Version None)
Quarter: 2009Q3

REPORT INFORMATION
  Report Type: 
  Country: None (occurrence: None)
  Receive Date: 20090715
  Receipt Date: 20090706
  Transmission Date: 20100115
  Serious: Yes (Other)
  Sender: FDA-Public Use
  Company Number: PHHY2009BR27602

PATIENT
  Age: 77 Year
  Sex: Female

DRUGS (5)
  1. TEGRETOL [Suspect]
     Indication: TRIGEMINAL NEURALGIA
     Dosage: 400 MG, QD
  2. TEGRETOL [Suspect]
     Dosage: 1 TABLET EVERY 8 HOURS
  3. TEGRETOL [Suspect]
     Dosage: 400 MG IN THE MORNING
  4. TEGRETOL [Suspect]
     Dosage: 400 MG AFTER LUNCH
  5. TEGRETOL [Suspect]
     Dosage: 400MG, 2 TABS AT ONCE
     Dates: start: 20090706

REACTIONS (12)
  - ANXIETY [None]
  - BALANCE DISORDER [None]
  - FACIAL OPERATION [None]
  - FEELING DRUNK [None]
  - INCORRECT DOSE ADMINISTERED [None]
  - NAUSEA [None]
  - NERVOUSNESS [None]
  - PARAESTHESIA [None]
  - PERIPHERAL COLDNESS [None]
  - SOMNOLENCE [None]
  - SPEECH DISORDER [None]
  - TREATMENT NONCOMPLIANCE [None]
